FAERS Safety Report 7039129-0 (Version None)
Quarter: 2010Q4

REPORT INFORMATION
  Report Type: 
  Country: None (occurrence: None)
  Receive Date: 20101012
  Receipt Date: 20101004
  Transmission Date: 20110411
  Serious: Yes (Hospitalization, Other)
  Sender: FDA-Public Use
  Company Number: US-TEVA-250636USA

PATIENT
  Age: 28 Year
  Sex: Male

DRUGS (2)
  1. FUROSEMIDE TABLETS USP, 20MG AND 40MG [Suspect]
     Indication: CARDIOMYOPATHY
     Dosage: 40 MG DAILY
  2. ENALAPRIL MALEATE [Concomitant]
     Indication: CARDIOMYOPATHY

REACTIONS (1)
  - STEVENS-JOHNSON SYNDROME [None]
